FAERS Safety Report 22642330 (Version 17)
Quarter: 2025Q1

REPORT INFORMATION
  Report Type: Spontaneous
  Country: US (occurrence: US)
  Receive Date: 20230626
  Receipt Date: 20250219
  Transmission Date: 20250409
  Serious: Yes (Disabling, Other)
  Sender: AMGEN
  Company Number: US-HORIZON THERAPEUTICS-HZN-2023-004759

PATIENT
  Age: 51 Year
  Sex: Male

DRUGS (58)
  1. TEPEZZA [Suspect]
     Active Substance: TEPROTUMUMAB-TRBW
     Indication: Graves^ disease
     Dosage: 820 MILLIGRAM, Q3WK (FIRST INFUSION)
     Route: 042
     Dates: start: 20201029, end: 20201029
  2. TEPEZZA [Suspect]
     Active Substance: TEPROTUMUMAB-TRBW
     Indication: Endocrine ophthalmopathy
     Dosage: 1590 MILLIGRAM, Q3WK (SECOND INFUSION)
     Route: 042
     Dates: start: 20201119, end: 20201119
  3. TEPEZZA [Suspect]
     Active Substance: TEPROTUMUMAB-TRBW
     Indication: Toxic goitre
     Dosage: 1610 MILLIGRAM, Q3WK (THIRD INFUSION)
     Route: 042
     Dates: start: 20201210, end: 20201210
  4. TEPEZZA [Suspect]
     Active Substance: TEPROTUMUMAB-TRBW
     Dosage: 1620 MILLIGRAM, Q3WK (FOURTH INFUSION)
     Route: 042
     Dates: start: 20210526, end: 20210526
  5. TEPEZZA [Suspect]
     Active Substance: TEPROTUMUMAB-TRBW
     Dosage: 1610 MILLIGRAM, Q3WK (FIFTH INFUSION)
     Route: 042
     Dates: start: 20210616, end: 20210616
  6. TEPEZZA [Suspect]
     Active Substance: TEPROTUMUMAB-TRBW
     Dosage: 1580 MILLIGRAM, Q3WK (SIXTH INFUSION)
     Route: 042
     Dates: start: 20210707, end: 20210707
  7. TEPEZZA [Suspect]
     Active Substance: TEPROTUMUMAB-TRBW
     Dosage: 1590 MILLIGRAM, Q3WK (SEVENTH INFUSION)
     Route: 042
     Dates: start: 20210728, end: 20210728
  8. TEPEZZA [Suspect]
     Active Substance: TEPROTUMUMAB-TRBW
     Dosage: UNK (LAST INFUSION)
     Route: 042
     Dates: start: 20210923
  9. PREDNISONE [Suspect]
     Active Substance: PREDNISONE
     Indication: Graves^ disease
     Route: 065
  10. PROAIR HFA [Concomitant]
     Active Substance: ALBUTEROL SULFATE
     Indication: Wheezing
     Dates: start: 20190506, end: 20210524
  11. ELAVIL [Concomitant]
     Active Substance: AMITRIPTYLINE HYDROCHLORIDE
     Route: 048
     Dates: start: 20191227, end: 20210816
  12. ELAVIL [Concomitant]
     Active Substance: AMITRIPTYLINE HYDROCHLORIDE
     Route: 065
  13. LIORESAL [Concomitant]
     Active Substance: BACLOFEN
     Dosage: 10 MILLIGRAM, QD
     Route: 048
     Dates: start: 20201123, end: 20210420
  14. BUSPAR [Concomitant]
     Active Substance: BUSPIRONE HYDROCHLORIDE
     Dosage: 10 MILLIGRAM, BID
     Route: 048
     Dates: start: 20180421, end: 20210616
  15. BUSPAR [Concomitant]
     Active Substance: BUSPIRONE HYDROCHLORIDE
     Dosage: 55 MILLIGRAM, QD
     Route: 048
  16. BUSPAR [Concomitant]
     Active Substance: BUSPIRONE HYDROCHLORIDE
     Route: 065
  17. BUSPAR [Concomitant]
     Active Substance: BUSPIRONE HYDROCHLORIDE
     Dosage: 20 MILLIGRAM, QHS
     Route: 065
  18. ZYRTEC [Concomitant]
     Active Substance: CETIRIZINE HYDROCHLORIDE
     Dosage: 10 MILLIGRAM, QD
     Route: 048
     Dates: start: 20180425, end: 20220427
  19. ZYRTEC [Concomitant]
     Active Substance: CETIRIZINE HYDROCHLORIDE
     Route: 048
  20. FLUOXETINE [Concomitant]
     Active Substance: FLUOXETINE HYDROCHLORIDE
     Dosage: 20 MILLIGRAM, QD
     Route: 048
     Dates: start: 20210312, end: 20210419
  21. FLONASE [Concomitant]
     Active Substance: FLUTICASONE PROPIONATE
     Route: 045
     Dates: start: 20180425, end: 20210616
  22. NEURONTIN [Concomitant]
     Active Substance: GABAPENTIN
     Dosage: 600 MILLIGRAM, TID
     Route: 048
     Dates: start: 20200126, end: 20210805
  23. TAPAZOLE [Concomitant]
     Active Substance: METHIMAZOLE
     Dosage: 10 MILLIGRAM, QD (ALT BETWEEN TAKING 2 TS AND 3 TS)
     Route: 048
     Dates: start: 20200130, end: 20210420
  24. DULERA [Concomitant]
     Active Substance: FORMOTEROL FUMARATE DIHYDRATE\MOMETASONE FUROATE
     Dosage: UNK, BID (INHALE 1 PUFF INTO THE LUNGS) (200-5 MCG/ACT INHALER)
     Dates: start: 20201002, end: 20210607
  25. MINERALS\VITAMINS [Concomitant]
     Active Substance: MINERALS\VITAMINS
     Dosage: UNK, QD (1 TABLET)
     Route: 048
  26. PRILOSEC [Concomitant]
     Active Substance: OMEPRAZOLE MAGNESIUM
     Dosage: 40 MILLIGRAM, QD
     Route: 048
     Dates: start: 20200219, end: 20220324
  27. MAXALT-MLT [Concomitant]
     Active Substance: RIZATRIPTAN BENZOATE
     Route: 048
     Dates: start: 20191007, end: 20220324
  28. SELENIUM [Concomitant]
     Active Substance: SELENIUM
     Dosage: 200 MICROGRAM, QD
     Route: 048
  29. VALTREX [Concomitant]
     Active Substance: VALACYCLOVIR HYDROCHLORIDE
     Dosage: 500 MILLIGRAM, QD (30 MINUTES PRIOR TO ATG.)
     Route: 048
     Dates: start: 20200108, end: 20220324
  30. TYLENOL [Concomitant]
     Active Substance: ACETAMINOPHEN
     Indication: Arthralgia
     Dosage: 500 MILLIGRAM, QID
     Route: 065
  31. MOTRIN [Concomitant]
     Active Substance: IBUPROFEN
     Indication: Arthralgia
     Dosage: 200 MILLIGRAM, Q6H
     Route: 048
  32. ALEVE [Concomitant]
     Active Substance: NAPROXEN SODIUM
     Indication: Arthralgia
     Route: 065
  33. KENALOG [Concomitant]
     Active Substance: TRIAMCINOLONE ACETONIDE
     Route: 061
     Dates: start: 20180425
  34. LIPITOR [Concomitant]
     Active Substance: ATORVASTATIN CALCIUM
     Route: 048
     Dates: start: 20190410
  35. CREATINE [Concomitant]
     Active Substance: CREATINE
     Route: 048
  36. ADVAIR HFA [Concomitant]
     Active Substance: FLUTICASONE PROPIONATE\SALMETEROL XINAFOATE
     Dosage: UNK, BID UNK (INHALE 1 PUFF INTO THE LUNGS)
     Route: 045
     Dates: start: 20190603
  37. WIXELA INHUB [Concomitant]
     Active Substance: FLUTICASONE PROPIONATE\SALMETEROL XINAFOATE
     Dosage: UNK, BID UNK (INHALE 1 PUFF INTO THE LUNGS)
     Route: 045
     Dates: start: 20190603
  38. AMITRIPTYLINE HYDROCHLORIDE [Concomitant]
     Active Substance: AMITRIPTYLINE HYDROCHLORIDE
     Route: 065
  39. TOPAMAX [Concomitant]
     Active Substance: TOPIRAMATE
     Dosage: 25 MILLIGRAM, BID
     Route: 048
     Dates: start: 20210802
  40. TOPAMAX [Concomitant]
     Active Substance: TOPIRAMATE
     Dosage: 50 MILLIGRAM, BID
     Route: 048
  41. ARIPIPRAZOLE [Concomitant]
     Active Substance: ARIPIPRAZOLE
     Route: 065
     Dates: start: 20210802
  42. ABILIFY [Concomitant]
     Active Substance: ARIPIPRAZOLE
     Route: 065
  43. AMITRIPTYLINE HYDROCHLORIDE [Concomitant]
     Active Substance: AMITRIPTYLINE HYDROCHLORIDE
     Dosage: 50 MILLIGRAM, QD
     Route: 048
     Dates: start: 20211112
  44. BUSPIRONE HYDROCHLORIDE [Concomitant]
     Active Substance: BUSPIRONE HYDROCHLORIDE
     Dosage: 30 MILLIGRAM, QD
     Route: 048
     Dates: start: 20210715
  45. LOPERAMIDE [Concomitant]
     Active Substance: LOPERAMIDE
     Route: 065
     Dates: start: 20210729
  46. ONDANSETRON [Concomitant]
     Active Substance: ONDANSETRON
     Route: 065
     Dates: start: 20210723
  47. VALACYCLOVIR [Concomitant]
     Active Substance: VALACYCLOVIR HYDROCHLORIDE
     Dates: start: 20210708
  48. DULOXETINE [Concomitant]
     Active Substance: DULOXETINE
     Route: 065
  49. METHIMAZOLE [Concomitant]
     Active Substance: METHIMAZOLE
     Dosage: 20 MILLIGRAM, QD
  50. METHIMAZOLE [Concomitant]
     Active Substance: METHIMAZOLE
     Dosage: 10 MILLIGRAM, QD
  51. SODIUM CHLORIDE [Concomitant]
     Active Substance: SODIUM CHLORIDE
     Dates: start: 20201029, end: 20201030
  52. SODIUM CHLORIDE [Concomitant]
     Active Substance: SODIUM CHLORIDE
     Dates: start: 20201119, end: 20201120
  53. SODIUM CHLORIDE [Concomitant]
     Active Substance: SODIUM CHLORIDE
     Dates: start: 20201210, end: 20201211
  54. SODIUM CHLORIDE [Concomitant]
     Active Substance: SODIUM CHLORIDE
     Dates: start: 20210526, end: 20210527
  55. SODIUM CHLORIDE [Concomitant]
     Active Substance: SODIUM CHLORIDE
     Dates: start: 20210616, end: 20210617
  56. SODIUM CHLORIDE [Concomitant]
     Active Substance: SODIUM CHLORIDE
     Dates: start: 20210707, end: 20210708
  57. SODIUM CHLORIDE [Concomitant]
     Active Substance: SODIUM CHLORIDE
     Dates: start: 20210728, end: 20210729
  58. Artificial tears [Concomitant]
     Route: 047

REACTIONS (78)
  - Deafness permanent [Not Recovered/Not Resolved]
  - Physical disability [Unknown]
  - Disability [Not Recovered/Not Resolved]
  - Suicidal ideation [Unknown]
  - Optic atrophy [Unknown]
  - Major depression [Unknown]
  - Endocrine ophthalmopathy [Unknown]
  - Deformity [Unknown]
  - Dizziness [Unknown]
  - Headache [Unknown]
  - Tinnitus [Not Recovered/Not Resolved]
  - Diarrhoea [Unknown]
  - Nausea [Unknown]
  - Therapy non-responder [Unknown]
  - Anxiety [Not Recovered/Not Resolved]
  - Concomitant disease aggravated [Not Recovered/Not Resolved]
  - Pain [Not Recovered/Not Resolved]
  - Injury [Not Recovered/Not Resolved]
  - Emotional distress [Not Recovered/Not Resolved]
  - Quality of life decreased [Not Recovered/Not Resolved]
  - Blood sodium decreased [Recovered/Resolved]
  - Discomfort [Not Recovered/Not Resolved]
  - Auditory disorder [Not Recovered/Not Resolved]
  - Abdominal discomfort [Unknown]
  - Tooth disorder [Unknown]
  - Eye pain [Unknown]
  - Osteoarthritis [Unknown]
  - Arthralgia [Unknown]
  - Musculoskeletal stiffness [Unknown]
  - Gait disturbance [Unknown]
  - Balance disorder [Unknown]
  - Middle insomnia [Unknown]
  - Sacroiliac joint dysfunction [Unknown]
  - Herpes simplex [Unknown]
  - Exostosis [Unknown]
  - Osteosclerosis [Unknown]
  - Night blindness [Not Recovered/Not Resolved]
  - Ocular discomfort [Unknown]
  - Eye swelling [Unknown]
  - Altered visual depth perception [Unknown]
  - Motion sickness [Unknown]
  - Eye disorder [Unknown]
  - Diplopia [Unknown]
  - Photophobia [Unknown]
  - Strabismus [Unknown]
  - Visual field defect [Unknown]
  - Weight decreased [Unknown]
  - Economic problem [Not Recovered/Not Resolved]
  - Insomnia [Unknown]
  - Frustration tolerance decreased [Unknown]
  - Post-traumatic stress disorder [Unknown]
  - Mobility decreased [Unknown]
  - Fatigue [Unknown]
  - Irritability [Unknown]
  - Electrolyte imbalance [Unknown]
  - Musculoskeletal disorder [Unknown]
  - Tooth loss [Unknown]
  - Overweight [Unknown]
  - Skin odour abnormal [Unknown]
  - Nocturia [Unknown]
  - Hyperhidrosis [Unknown]
  - Back pain [Unknown]
  - Rotator cuff syndrome [Unknown]
  - Taste disorder [Unknown]
  - Pineal gland cyst [Unknown]
  - Asthma [Unknown]
  - Neutrophil percentage increased [Unknown]
  - Neutrophil count increased [Unknown]
  - Lymphocyte count increased [Unknown]
  - Monocyte count increased [Unknown]
  - Basophil count increased [Unknown]
  - Blood glucose increased [Unknown]
  - White blood cell count increased [Unknown]
  - Mean platelet volume decreased [Unknown]
  - Carbon dioxide decreased [Unknown]
  - Blood pressure increased [Unknown]
  - Blood creatinine decreased [Unknown]
  - Therapy interrupted [Unknown]

NARRATIVE: CASE EVENT DATE: 20191009
